FAERS Safety Report 13461241 (Version 1)
Quarter: 2017Q2

REPORT INFORMATION
  Report Type: Spontaneous
  Country: GB (occurrence: GB)
  Receive Date: 20170420
  Receipt Date: 20170420
  Transmission Date: 20170830
  Serious: Yes (Hospitalization, Other)
  Sender: FDA-Public Use
  Company Number: GB-TORRENT-00006506

PATIENT
  Age: 47 Year
  Sex: Female

DRUGS (3)
  1. PANTOPRAZOLE [Suspect]
     Active Substance: PANTOPRAZOLE
  2. RANITIDINE. [Concomitant]
     Active Substance: RANITIDINE
  3. DOMPERIDONE [Concomitant]
     Active Substance: DOMPERIDONE

REACTIONS (1)
  - Tubulointerstitial nephritis [Recovering/Resolving]
